FAERS Safety Report 21348266 (Version 1)
Quarter: 2022Q3

REPORT INFORMATION
  Report Type: Spontaneous
  Country: CN (occurrence: CN)
  Receive Date: 20220919
  Receipt Date: 20220919
  Transmission Date: 20221027
  Serious: Yes (Other)
  Sender: FDA-Public Use
  Company Number: ALC2022CN004336

PATIENT
  Age: 69 Year
  Sex: Female
  Weight: 46.5 kg

DRUGS (2)
  1. FLUORESCITE [Suspect]
     Active Substance: FLUORESCEIN SODIUM
     Indication: Ophthalmic vein thrombosis
     Dosage: 3 ML, QD
     Route: 042
     Dates: start: 20220830, end: 20220830
  2. INDOCYANINE GREEN [Concomitant]
     Active Substance: INDOCYANINE GREEN
     Indication: Ophthalmic vein thrombosis
     Dosage: 25 MG, QD
     Route: 042
     Dates: start: 20220830, end: 20220830

REACTIONS (1)
  - Hypertension [Recovering/Resolving]

NARRATIVE: CASE EVENT DATE: 20220830
